FAERS Safety Report 6038194-7 (Version None)
Quarter: 2009Q1

REPORT INFORMATION
  Report Type: 
  Country: None (occurrence: None)
  Receive Date: 20090113
  Receipt Date: 20090113
  Transmission Date: 20090719
  Serious: Yes (Hospitalization)
  Sender: FDA-Public Use
  Company Number: None

PATIENT
  Age: 67 Year
  Sex: Female
  Weight: 88.4514 kg

DRUGS (2)
  1. INDOMETHACIN [Suspect]
     Indication: INFLAMMATION
     Dosage: 1 TABLET 2 X DAILY PO
     Route: 048
     Dates: start: 20080106, end: 20080106
  2. INDOMETHACIN [Suspect]
     Indication: PAIN
     Dosage: 1 TABLET 2 X DAILY PO
     Route: 048
     Dates: start: 20080106, end: 20080106

REACTIONS (3)
  - AMNESIA [None]
  - INTESTINAL FUNCTIONAL DISORDER [None]
  - LOSS OF CONSCIOUSNESS [None]
